FAERS Safety Report 13429868 (Version 1)
Quarter: 2017Q2

REPORT INFORMATION
  Report Type: Report from Study
  Country: None (occurrence: US)
  Receive Date: 20170412
  Receipt Date: 20170412
  Transmission Date: 20170830
  Serious: Yes (Hospitalization, Other)
  Sender: FDA-Public Use
  Company Number: US-ABBVIE-17K-163-1876647-00

PATIENT
  Sex: Male
  Weight: 74.91 kg

DRUGS (4)
  1. HUMIRA [Suspect]
     Active Substance: ADALIMUMAB
     Indication: RHEUMATOID ARTHRITIS
     Route: 058
     Dates: start: 20050623
  2. METHOTREXATE. [Suspect]
     Active Substance: METHOTREXATE
     Indication: RHEUMATOID ARTHRITIS
     Route: 065
  3. PROTONIX [Suspect]
     Active Substance: PANTOPRAZOLE SODIUM
     Indication: GASTROINTESTINAL ULCER
     Route: 065
  4. FOLIC ACID. [Concomitant]
     Active Substance: FOLIC ACID
     Indication: VITAMIN SUPPLEMENTATION

REACTIONS (13)
  - Faeces discoloured [Recovered/Resolved]
  - Nocturia [Recovered/Resolved]
  - Haemoglobin decreased [Unknown]
  - Tooth extraction [Unknown]
  - Prostatic disorder [Unknown]
  - Gastrointestinal ulcer [Recovered/Resolved]
  - Peripheral swelling [Recovered/Resolved]
  - Injection site bruising [Recovered/Resolved]
  - Asthenia [Recovered/Resolved]
  - Joint swelling [Unknown]
  - Stress [Recovered/Resolved]
  - Nasal cavity cancer [Recovered/Resolved]
  - Prostatic specific antigen increased [Unknown]

NARRATIVE: CASE EVENT DATE: 2005
